FAERS Safety Report 22249404 (Version 1)
Quarter: 2023Q2

REPORT INFORMATION
  Report Type: Report from Study
  Country: FR (occurrence: FR)
  Receive Date: 20230425
  Receipt Date: 20230425
  Transmission Date: 20230722
  Serious: Yes (Hospitalization, Other)
  Sender: FDA-Public Use
  Company Number: FR-GILEAD-2022-0571632

PATIENT
  Sex: Female
  Weight: 56 kg

DRUGS (13)
  1. SACITUZUMAB GOVITECAN-HZIY [Suspect]
     Active Substance: SACITUZUMAB GOVITECAN-HZIY
     Indication: Triple negative breast cancer
     Dosage: 7 MG/KG, C1, DAY 1
     Route: 042
     Dates: start: 20220114, end: 20220114
  2. SACITUZUMAB GOVITECAN-HZIY [Suspect]
     Active Substance: SACITUZUMAB GOVITECAN-HZIY
     Dosage: 5 MG/KG, C1, DAY 8
     Route: 042
     Dates: start: 20220128, end: 20220128
  3. SACITUZUMAB GOVITECAN-HZIY [Suspect]
     Active Substance: SACITUZUMAB GOVITECAN-HZIY
     Dosage: 5.6 MG/KG, CYCLE 2 DAY 1, 8
     Route: 042
     Dates: start: 20220207, end: 20220214
  4. SACITUZUMAB GOVITECAN-HZIY [Suspect]
     Active Substance: SACITUZUMAB GOVITECAN-HZIY
     Dosage: CYCLE 3
     Route: 042
     Dates: start: 20220228, end: 20220307
  5. SACITUZUMAB GOVITECAN-HZIY [Suspect]
     Active Substance: SACITUZUMAB GOVITECAN-HZIY
     Dosage: 7 MG/KG ON C4D1 AND C4D8
     Route: 042
     Dates: start: 20220413, end: 20220421
  6. SACITUZUMAB GOVITECAN-HZIY [Suspect]
     Active Substance: SACITUZUMAB GOVITECAN-HZIY
     Dosage: 5.6 MG/KG ON C5D1 AND C5D8
     Route: 042
     Dates: start: 20220503, end: 20220509
  7. SACITUZUMAB GOVITECAN-HZIY [Suspect]
     Active Substance: SACITUZUMAB GOVITECAN-HZIY
     Dosage: 5.6 MG/KG ON C6D1 AND C6D8
     Route: 042
     Dates: start: 20220524, end: 20220530
  8. SACITUZUMAB GOVITECAN-HZIY [Suspect]
     Active Substance: SACITUZUMAB GOVITECAN-HZIY
     Dosage: 5.6 MG/KG ON C7D1 AND C7D8
     Route: 042
     Dates: start: 20220627, end: 20220704
  9. SACITUZUMAB GOVITECAN-HZIY [Suspect]
     Active Substance: SACITUZUMAB GOVITECAN-HZIY
     Dosage: 5.6 MG/KG ON C8D1 AND C8D8
     Route: 042
     Dates: start: 20220718, end: 20220725
  10. SACITUZUMAB GOVITECAN-HZIY [Suspect]
     Active Substance: SACITUZUMAB GOVITECAN-HZIY
     Dosage: 5.6 MG/KG ON C9D1 AND C9D8
     Route: 042
     Dates: start: 20220808, end: 20220816
  11. SACITUZUMAB GOVITECAN-HZIY [Suspect]
     Active Substance: SACITUZUMAB GOVITECAN-HZIY
     Dosage: 5.6 MG/KG ON C10D1 AND C10D8
     Route: 042
     Dates: start: 20220829, end: 20220905
  12. SACITUZUMAB GOVITECAN-HZIY [Suspect]
     Active Substance: SACITUZUMAB GOVITECAN-HZIY
     Dosage: 5.625 MG/KG
     Route: 042
     Dates: end: 20220905
  13. SACITUZUMAB GOVITECAN-HZIY [Suspect]
     Active Substance: SACITUZUMAB GOVITECAN-HZIY
     Dosage: 5.6-6 MG/KG D1, D8,  EVERY  21 DAYS
     Route: 042
     Dates: start: 20220114

REACTIONS (9)
  - Hyperthermia [Recovered/Resolved]
  - Hypotension [Recovered/Resolved]
  - Asthenia [Recovered/Resolved with Sequelae]
  - Asthenia [Recovered/Resolved]
  - Anaemia [Recovered/Resolved]
  - COVID-19 [Unknown]
  - Off label use [Recovered/Resolved]
  - Off label use [Recovered/Resolved]
  - Inappropriate schedule of product administration [Recovered/Resolved]

NARRATIVE: CASE EVENT DATE: 20220114
